FAERS Safety Report 18039252 (Version 3)
Quarter: 2023Q4

REPORT INFORMATION
  Report Type: Spontaneous
  Country: FR (occurrence: FR)
  Receive Date: 20200718
  Receipt Date: 20231108
  Transmission Date: 20240110
  Serious: Yes (Other)
  Sender: FDA-Public Use
  Company Number: FR-JNJFOC-20200713242

PATIENT
  Age: 63 Year
  Sex: Male

DRUGS (6)
  1. MELPHALAN [Suspect]
     Active Substance: MELPHALAN
     Indication: Plasma cell myeloma
     Dosage: 200 MILLIGRAM FOR1.767 YEARS
     Route: 065
  2. DEXAMETHASONE [Suspect]
     Active Substance: DEXAMETHASONE
     Indication: Plasma cell myeloma
     Dosage: 40 MILLIGRAM (1, D4, D8 AND D11) FOR 1.767 YEARS
     Route: 065
  3. DEXAMETHASONE [Suspect]
     Active Substance: DEXAMETHASONE
     Dosage: 10 MILLIGRAM, EVERY WEEK,MAINTENANCE: 10 MG/DOSE 2 DOSES/WEEK 2 WEEKS( S)/CYCLE
     Route: 065
  4. POMALIDOMIDE [Suspect]
     Active Substance: POMALIDOMIDE
     Indication: Plasma cell myeloma
     Dosage: 4 MILLIGRAM (D1 AND D4) 1.767 YEARS
     Route: 065
  5. POMALIDOMIDE [Suspect]
     Active Substance: POMALIDOMIDE
     Dosage: 3 MILLIGRAM,MAINTENANCE: POMALIDOMIDE 3 MG/DOSE 7 DOSES/WEEK 3 WEEK(S)/CYCLE
     Route: 065
  6. VELCADE [Suspect]
     Active Substance: BORTEZOMIB
     Indication: Plasma cell myeloma
     Dosage: 2.3 MILLIGRAM (D1, D4, D8 AND D11) FOR 1.767 YEARS
     Route: 065

REACTIONS (4)
  - Pneumonia [Recovered/Resolved]
  - Off label use [Unknown]
  - Product use issue [Unknown]
  - Intentional product use issue [Unknown]

NARRATIVE: CASE EVENT DATE: 20181231
